FAERS Safety Report 6556387-7 (Version None)
Quarter: 2010Q1

REPORT INFORMATION
  Report Type: 
  Country: None (occurrence: None)
  Receive Date: 20100128
  Receipt Date: 20100119
  Transmission Date: 20100710
  Serious: Yes (Disabling)
  Sender: FDA-Public Use
  Company Number: GXKR2010AU00933

PATIENT

DRUGS (3)
  1. PARACETAMOL+CODEINE PHOSPHATE (NGX) [Suspect]
  2. OXYCODONE HCL [Suspect]
  3. METHOTREXATE [Concomitant]

REACTIONS (4)
  - COCHLEA IMPLANT [None]
  - DEAFNESS NEUROSENSORY [None]
  - MACROCYTOSIS [None]
  - TINNITUS [None]
